FAERS Safety Report 10311095 (Version 1)
Quarter: 2014Q3

REPORT INFORMATION
  Report Type: Spontaneous
  Country: CA (occurrence: None)
  Receive Date: 20140715
  Receipt Date: 20140715
  Transmission Date: 20150326
  Serious: Yes (Hospitalization, Other)
  Sender: FDA-Public Use
  Company Number: AXC-2014-00435

PATIENT
  Age: 72 Year
  Sex: Male
  Weight: 74.8 kg

DRUGS (1)
  1. SALOFALK (MESALAMINE) TABLET [Suspect]
     Active Substance: MESALAMINE
     Indication: PRODUCT USED FOR UNKNOWN INDICATION
     Route: 048

REACTIONS (4)
  - Dysuria [None]
  - Dyspnoea [None]
  - Tremor [None]
  - Pyrexia [None]
